FAERS Safety Report 5105860-7 (Version None)
Quarter: 2006Q3

REPORT INFORMATION
  Report Type: 
  Country: None (occurrence: None)
  Receive Date: 20060915
  Receipt Date: 20060912
  Transmission Date: 20061208
  Serious: Yes (Other)
  Sender: FDA-Public Use
  Company Number: BR-GLAXOSMITHKLINE-A0620221A

PATIENT
  Age: 30 Year
  Sex: Male
  Weight: 67 kg

DRUGS (4)
  1. ZIAGENAVIR [Suspect]
     Indication: HIV INFECTION
     Dosage: 300MG TWICE PER DAY
     Route: 048
     Dates: start: 20060911
  2. STAVUDINE [Concomitant]
     Dates: start: 20040101
  3. ZIDOVUDINE [Concomitant]
     Dates: start: 20040101
  4. LAMIVUDINE [Concomitant]
     Dates: start: 20040101, end: 20060911

REACTIONS (1)
  - HALLUCINATION [None]
